FAERS Safety Report 14497811 (Version 1)
Quarter: 2018Q1

REPORT INFORMATION
  Report Type: Spontaneous
  Country: CN (occurrence: CN)
  Receive Date: 20180207
  Receipt Date: 20180207
  Transmission Date: 20180509
  Serious: Yes (Life-Threatening, Hospitalization)
  Sender: FDA-Public Use
  Company Number: CN-BRACCO-2018CN00503

PATIENT
  Age: 47 Year
  Sex: Female

DRUGS (1)
  1. IOPAMIRO [Suspect]
     Active Substance: IOPAMIDOL
     Indication: ANGIOGRAM
     Dosage: 65 ML, SINGLE, 5ML/S
     Route: 042
     Dates: start: 20171109, end: 20171109

REACTIONS (4)
  - Cardiogenic shock [Recovering/Resolving]
  - Muscle injury [Recovering/Resolving]
  - Deep vein thrombosis [Recovering/Resolving]
  - Peptic ulcer [Recovering/Resolving]

NARRATIVE: CASE EVENT DATE: 20171109
